FAERS Safety Report 4786605-7 (Version None)
Quarter: 2005Q3

REPORT INFORMATION
  Report Type: 
  Country: None (occurrence: None)
  Receive Date: 20050927
  Receipt Date: 20050627
  Transmission Date: 20060218
  Serious: No
  Sender: FDA-Public Use
  Company Number: USA0506101443

PATIENT
  Sex: Female

DRUGS (4)
  1. STRATTERA [Suspect]
     Indication: ATTENTION DEFICIT/HYPERACTIVITY DISORDER
     Dosage: 40 MG/2 DAY
     Dates: end: 20050626
  2. CYMBALTA [Concomitant]
  3. TRAZODONE HCL [Concomitant]
  4. EFFEXOR [Concomitant]

REACTIONS (3)
  - DRUG INTERACTION [None]
  - HEADACHE [None]
  - WEIGHT INCREASED [None]
